FAERS Safety Report 10207065 (Version 1)
Quarter: 2014Q2

REPORT INFORMATION
  Report Type: Spontaneous
  Country: US (occurrence: None)
  Receive Date: 20140527
  Receipt Date: 20140527
  Transmission Date: 20141212
  Serious: Yes (Other)
  Sender: FDA-Public Use
  Company Number: US-TORRENT-00000760

PATIENT
  Sex: Male

DRUGS (1)
  1. ISOSORBIDE MONONITRATE [Suspect]
     Indication: PRODUCT USED FOR UNKNOWN INDICATION

REACTIONS (3)
  - Angina pectoris [None]
  - Myocardial infarction [None]
  - Middle insomnia [None]
